FAERS Safety Report 8532654 (Version 3)
Quarter: 2012Q4

REPORT INFORMATION
  Report Type: 
  Country: DK (occurrence: DK)
  Receive Date: 20120426
  Receipt Date: 20121005
  Transmission Date: 20130627
  Serious: Yes (Death, Hospitalization, Other)
  Sender: FDA-Public Use
  Company Number: DK-CELGENEUS-044-21880-12041691

PATIENT
  Age: 85 Year
  Sex: Female

DRUGS (7)
  1. REVLIMID [Suspect]
     Indication: MYELOMATOSIS
     Dosage: 10 Milligram
     Route: 048
     Dates: start: 20080702, end: 200903
  2. REVLIMID [Suspect]
     Dosage: 10 Milligram
     Route: 048
     Dates: start: 201009, end: 20110517
  3. PREDNISONE [Concomitant]
     Indication: MYELOMATOSIS
     Route: 065
     Dates: start: 20080702, end: 200903
  4. PREDNISONE [Concomitant]
     Route: 065
     Dates: start: 20080702, end: 20110517
  5. ALKERAN [Concomitant]
     Indication: MYELOMATOSIS
     Route: 048
     Dates: start: 20080702, end: 200903
  6. ALKERAN [Concomitant]
     Route: 065
     Dates: start: 201009, end: 20110517
  7. MAGNYL [Concomitant]
     Indication: THROMBOSIS PROPHYLAXIS
     Route: 065

REACTIONS (3)
  - Myelodysplastic syndrome [Fatal]
  - Duodenal ulcer [Unknown]
  - Gastrointestinal haemorrhage [Not Recovered/Not Resolved]
